FAERS Safety Report 9504126 (Version 1)
Quarter: 2013Q3

REPORT INFORMATION
  Report Type: Spontaneous
  Country: US (occurrence: US)
  Receive Date: 20130906
  Receipt Date: 20130906
  Transmission Date: 20140515
  Serious: Yes (Hospitalization)
  Sender: FDA-Public Use
  Company Number: US-ELI_LILLY_AND_COMPANY-US201308008220

PATIENT
  Age: 74 Year
  Sex: Female

DRUGS (3)
  1. HUMALOG LISPRO [Suspect]
     Indication: TYPE 2 DIABETES MELLITUS
     Dosage: UNK, PRN
     Dates: start: 201305
  2. COZAAR [Concomitant]
  3. ASPIRIN [Concomitant]
     Dosage: 81 MG, UNKNOWN

REACTIONS (3)
  - Chest pain [Unknown]
  - Blood glucose increased [Unknown]
  - Heart rate irregular [Unknown]
